FAERS Safety Report 7475284-6 (Version None)
Quarter: 2011Q2

REPORT INFORMATION
  Report Type: 
  Country: None (occurrence: None)
  Receive Date: 20110512
  Receipt Date: 20110503
  Transmission Date: 20111010
  Serious: Yes (Other)
  Sender: FDA-Public Use
  Company Number: ES-CELGENEUS-144-21880-11042003

PATIENT
  Age: 75 Year
  Sex: Female

DRUGS (2)
  1. DEXAN [Concomitant]
     Route: 065
  2. REVLIMID [Suspect]
     Route: 048
     Dates: start: 20080801, end: 20100901

REACTIONS (2)
  - DEEP VEIN THROMBOSIS [None]
  - DRUG INTOLERANCE [None]
